FAERS Safety Report 10745680 (Version 1)
Quarter: 2015Q1

REPORT INFORMATION
  Report Type: Report from Study
  Country: US (occurrence: US)
  Receive Date: 20150128
  Receipt Date: 20150128
  Transmission Date: 20150721
  Serious: Yes (Other)
  Sender: FDA-Public Use
  Company Number: US-GILEAD-2015-0133681

PATIENT
  Age: 51 Year
  Sex: Male

DRUGS (1)
  1. EMTRICITABINE/TENOFOVIR DISOPROXIL FUMARATE [Suspect]
     Active Substance: EMTRICITABINE\TENOFOVIR DISOPROXIL
     Indication: HIV INFECTION
     Dosage: 500 MG, UNK
     Route: 048

REACTIONS (5)
  - Hepatitis B [Unknown]
  - Rheumatoid arthritis [Not Recovered/Not Resolved]
  - Liver disorder [Unknown]
  - Pain [Not Recovered/Not Resolved]
  - Renal disorder [Unknown]
